FAERS Safety Report 10182657 (Version 1)
Quarter: 2014Q2

REPORT INFORMATION
  Report Type: Spontaneous
  Country: US (occurrence: None)
  Receive Date: 20140519
  Receipt Date: 20140519
  Transmission Date: 20141212
  Serious: No
  Sender: FDA-Public Use
  Company Number: None

PATIENT
  Sex: Male

DRUGS (2)
  1. IMBRUVICA 140 MG CAPSULE [Suspect]
     Indication: ANAEMIA OF CHRONIC DISEASE
     Route: 048
     Dates: start: 20140214
  2. IMBRUVICA 140 MG CAPSULE [Suspect]
     Indication: NEUTROPENIA
     Route: 048
     Dates: start: 20140214

REACTIONS (1)
  - Atrial fibrillation [None]
